FAERS Safety Report 5534768-8 (Version None)
Quarter: 2007Q4

REPORT INFORMATION
  Report Type: 
  Country: None (occurrence: None)
  Receive Date: 20071120
  Receipt Date: 20070905
  Transmission Date: 20080405
  Serious: No
  Sender: FDA-Public Use
  Company Number: WAES 0709USA00547

PATIENT
  Age: 58 Year
  Sex: Female
  Weight: 85.7298 kg

DRUGS (16)
  1. JANUVIA [Suspect]
     Indication: DIABETES MELLITUS
     Dosage: 100 MG/DAILY/PO
     Route: 048
     Dates: start: 20070815, end: 20070907
  2. ALLEGRA [Concomitant]
  3. CELEBREX [Concomitant]
  4. CRESTOR [Concomitant]
  5. DARVOCET-N 100 [Concomitant]
  6. DARVON [Concomitant]
  7. EVISTA [Concomitant]
  8. FLEXERIL [Concomitant]
  9. LANTUS [Concomitant]
  10. NOVOLOG [Concomitant]
  11. TRICOR [Concomitant]
  12. THERAPY UNSPECIFIED [Concomitant]
  13. ATENOLOL [Concomitant]
  14. DIAZEPAM [Concomitant]
  15. ENALAPRIL MALEATE [Concomitant]
  16. OMEPRAZOLE [Concomitant]

REACTIONS (2)
  - PHOTOSENSITIVITY REACTION [None]
  - RASH PAPULAR [None]
